FAERS Safety Report 14258460 (Version 1)
Quarter: 2017Q4

REPORT INFORMATION
  Report Type: Spontaneous
  Country: US (occurrence: US)
  Receive Date: 20171206
  Receipt Date: 20171206
  Transmission Date: 20180321
  Serious: Yes (Other)
  Sender: FDA-Public Use
  Company Number: None

PATIENT
  Age: 57 Year
  Sex: Female
  Weight: 55.35 kg

DRUGS (5)
  1. CALCIUM [Concomitant]
     Active Substance: CALCIUM
  2. MVI [Concomitant]
     Active Substance: VITAMINS
  3. GAVISCON [Concomitant]
     Active Substance: ALUMINUM HYDROXIDE\MAGNESIUM CARBONATE
  4. CLIMARA [Suspect]
     Active Substance: ESTRADIOL
     Indication: OESTROGEN REPLACEMENT THERAPY
     Dosage: ?          QUANTITY:1 PATCH(ES);OTHER FREQUENCY:EVERY WEEK;?
     Route: 062
     Dates: start: 20171126, end: 20171127
  5. RESTASIS [Concomitant]
     Active Substance: CYCLOSPORINE

REACTIONS (4)
  - Tinnitus [None]
  - Heart rate irregular [None]
  - Extrasystoles [None]
  - Feeling abnormal [None]

NARRATIVE: CASE EVENT DATE: 20171126
